FAERS Safety Report 8552245-7 (Version None)
Quarter: 2012Q3

REPORT INFORMATION
  Report Type: 
  Country: None (occurrence: None)
  Receive Date: 20120723
  Receipt Date: 20120723
  Transmission Date: 20120928
  Serious: Yes (Other)
  Sender: FDA-Public Use
  Company Number: None

PATIENT
  Age: 37 Year
  Sex: Female
  Weight: 158.759 kg

DRUGS (1)
  1. CYMBALTA [Suspect]
     Indication: GENERALISED ANXIETY DISORDER
     Dosage: 30 MGS EVERY 4 DAYS PO
     Route: 048
     Dates: start: 20080501, end: 20120720

REACTIONS (5)
  - DIZZINESS [None]
  - PAIN [None]
  - HYPERHIDROSIS [None]
  - WITHDRAWAL SYNDROME [None]
  - INSOMNIA [None]
